FAERS Safety Report 8163527-5 (Version None)
Quarter: 2012Q1

REPORT INFORMATION
  Report Type: 
  Country: None (occurrence: None)
  Receive Date: 20120224
  Receipt Date: 20120222
  Transmission Date: 20120608
  Serious: Yes (Other)
  Sender: FDA-Public Use
  Company Number: US-JNJFOC-20120211132

PATIENT
  Age: 72 Year
  Sex: Male

DRUGS (4)
  1. NICOTINE [Suspect]
     Route: 048
     Dates: start: 20060101, end: 20070101
  2. NICOTINE [Suspect]
     Indication: SMOKING CESSATION THERAPY
     Route: 048
  3. NICOTINE [Suspect]
     Indication: SMOKING CESSATION THERAPY
     Route: 048
     Dates: start: 20080101
  4. NICOTINE [Suspect]
     Indication: SMOKING CESSATION THERAPY
     Route: 048
     Dates: start: 20110101

REACTIONS (5)
  - INTENTIONAL DRUG MISUSE [None]
  - NICOTINE DEPENDENCE [None]
  - DIZZINESS [None]
  - SALIVARY HYPERSECRETION [None]
  - FEELING ABNORMAL [None]
